FAERS Safety Report 11395064 (Version 1)
Quarter: 2015Q3

REPORT INFORMATION
  Report Type: Spontaneous
  Country: BR (occurrence: BR)
  Receive Date: 20150819
  Receipt Date: 20150819
  Transmission Date: 20151125
  Serious: Yes (Hospitalization)
  Sender: FDA-Public Use
  Company Number: BR-SA-2015SA122734

PATIENT
  Age: 65 Year
  Sex: Male

DRUGS (7)
  1. ENBREL [Concomitant]
     Active Substance: ETANERCEPT
     Indication: RHEUMATOID ARTHRITIS
     Dosage: PFS FILLED SYRINGES
     Dates: start: 2010, end: 201504
  2. ENBREL [Concomitant]
     Active Substance: ETANERCEPT
     Dosage: VACCINE
     Dates: end: 201504
  3. ENALAPRIL [Suspect]
     Active Substance: ENALAPRIL
     Route: 065
     Dates: end: 2010
  4. PROPRANOLOL [Suspect]
     Active Substance: PROPRANOLOL\PROPRANOLOL HYDROCHLORIDE
     Indication: HYPERTENSION
     Route: 065
     Dates: start: 2000, end: 2015
  5. DAONIL [Suspect]
     Active Substance: GLYBURIDE
     Indication: TYPE 2 DIABETES MELLITUS
     Route: 065
     Dates: start: 2005
  6. TANDRILAX [Suspect]
     Active Substance: ACETAMINOPHEN\CAFFEINE\CARISOPRODOL\DICLOFENAC SODIUM
     Route: 065
     Dates: end: 20150430
  7. CAPTOPRIL. [Suspect]
     Active Substance: CAPTOPRIL
     Indication: HYPERTENSION
     Route: 065
     Dates: start: 2012, end: 2015

REACTIONS (6)
  - Cough [Recovered/Resolved]
  - Vascular occlusion [Unknown]
  - Fatigue [Unknown]
  - Chest pain [Unknown]
  - Dyspnoea [Unknown]
  - Procedural pain [Not Recovered/Not Resolved]

NARRATIVE: CASE EVENT DATE: 2010
